FAERS Safety Report 11927585 (Version 1)
Quarter: 2016Q1

REPORT INFORMATION
  Report Type: Spontaneous
  Country: CA (occurrence: CA)
  Receive Date: 20160119
  Receipt Date: 20160119
  Transmission Date: 20160526
  Serious: Yes (Death)
  Sender: FDA-Public Use
  Company Number: CA-TEVA-626467ACC

PATIENT
  Age: 57 Year
  Sex: Female

DRUGS (19)
  1. CYCLOBENZAPRINE [Interacting]
     Active Substance: CYCLOBENZAPRINE
     Indication: MUSCLE RELAXANT THERAPY
  2. FLURAZEPAM HYDROCHLORIDE. [Interacting]
     Active Substance: FLURAZEPAM HYDROCHLORIDE
     Indication: INSOMNIA
  3. ASPIRIN. [Concomitant]
     Active Substance: ASPIRIN
  4. VITAMIN B12 [Concomitant]
     Active Substance: CYANOCOBALAMIN
  5. SENNOSIDES. [Concomitant]
     Active Substance: SENNOSIDES
  6. BUPROPION. [Suspect]
     Active Substance: BUPROPION
     Indication: ANTIDEPRESSANT THERAPY
  7. FENTANYL. [Interacting]
     Active Substance: FENTANYL
     Indication: PAIN
     Route: 065
  8. ACETAMINOPHEN. [Interacting]
     Active Substance: ACETAMINOPHEN
     Indication: ANALGESIC THERAPY
     Route: 065
  9. FENOFIBRATE. [Concomitant]
     Active Substance: FENOFIBRATE
  10. HYDROMORPHONE [Interacting]
     Active Substance: HYDROMORPHONE
     Indication: PAIN
     Route: 065
  11. LORAZEPAM. [Interacting]
     Active Substance: LORAZEPAM
     Indication: ANXIETY
     Route: 065
  12. INSULIN RAPID [Concomitant]
     Active Substance: INSULIN NOS
  13. DOCUSATE SODIUM. [Concomitant]
     Active Substance: DOCUSATE SODIUM
  14. PANTOPRAZOLE [Concomitant]
     Active Substance: PANTOPRAZOLE SODIUM
  15. CITALOPRAM [Interacting]
     Active Substance: CITALOPRAM HYDROBROMIDE
     Indication: ANTIDEPRESSANT THERAPY
  16. TRAZODONE [Interacting]
     Active Substance: TRAZODONE HYDROCHLORIDE
     Indication: ANTIDEPRESSANT THERAPY
  17. CALCIUM AND VITAMIN D [Concomitant]
     Active Substance: CALCIUM\VITAMIN D
  18. LAMOTRIGINE. [Concomitant]
     Active Substance: LAMOTRIGINE
  19. LANTUS [Concomitant]
     Active Substance: INSULIN GLARGINE
     Route: 058

REACTIONS (6)
  - Completed suicide [Fatal]
  - Muscle relaxant drug level above therapeutic [Fatal]
  - Antidepressant drug level above therapeutic [Fatal]
  - Toxicity to various agents [Fatal]
  - Circumstance or information capable of leading to medication error [Fatal]
  - Potentiating drug interaction [Fatal]
